FAERS Safety Report 7816887-6 (Version None)
Quarter: 2011Q4

REPORT INFORMATION
  Report Type: 
  Country: None (occurrence: None)
  Receive Date: 20111013
  Receipt Date: 20111007
  Transmission Date: 20120403
  Serious: Yes (Death, Hospitalization, Other)
  Sender: FDA-Public Use
  Company Number: 2011SP046475

PATIENT
  Age: 67 Year
  Sex: Male

DRUGS (8)
  1. LEXAPRO [Concomitant]
  2. ERLOTINIB HYDROCHLORIDE [Suspect]
     Indication: GLIOBLASTOMA MULTIFORME
     Dosage: 200 MG;QD;PO
     Route: 048
     Dates: start: 20110902, end: 20110908
  3. VORINOSTAT [Suspect]
     Indication: GLIOBLASTOMA MULTIFORME
     Dosage: 200 MG;BID;PO
     Route: 048
     Dates: start: 20110902, end: 20110908
  4. KEPPRA [Concomitant]
  5. DIFLUCAN [Concomitant]
  6. AMLODIPINE [Concomitant]
  7. TEMOZOLOMIDE [Suspect]
     Indication: GLIOBLASTOMA MULTIFORME
     Dosage: 240 MG;QD;PO
     Route: 048
     Dates: start: 20110902, end: 20110913
  8. TYLENOL-500 [Concomitant]

REACTIONS (17)
  - BLOOD SODIUM INCREASED [None]
  - VOMITING [None]
  - ASTHENIA [None]
  - SOMNOLENCE [None]
  - BLOOD GLUCOSE INCREASED [None]
  - PNEUMONITIS [None]
  - NAUSEA [None]
  - RESPIRATORY DISTRESS [None]
  - DEPRESSED LEVEL OF CONSCIOUSNESS [None]
  - FEBRILE NEUTROPENIA [None]
  - INFECTION [None]
  - SEPTIC SHOCK [None]
  - DIARRHOEA [None]
  - ESCHERICHIA INFECTION [None]
  - RENAL FAILURE ACUTE [None]
  - GENERAL PHYSICAL HEALTH DETERIORATION [None]
  - URINARY TRACT INFECTION [None]
